FAERS Safety Report 15863707 (Version 3)
Quarter: 2019Q2

REPORT INFORMATION
  Report Type: Spontaneous
  Country: US (occurrence: US)
  Receive Date: 20190124
  Receipt Date: 20190403
  Transmission Date: 20190711
  Serious: Yes (Other)
  Sender: FDA-Public Use
  Company Number: US-ASTRAZENECA-2018SF26665

PATIENT
  Age: 72 Year
  Sex: Female
  Weight: 66.7 kg

DRUGS (11)
  1. METOPROLOL. [Concomitant]
     Active Substance: METOPROLOL
     Route: 065
     Dates: start: 20100927
  2. NEXIUM [Suspect]
     Active Substance: ESOMEPRAZOLE MAGNESIUM
     Route: 048
     Dates: start: 2010, end: 2015
  3. NIFEDICAL XL [Concomitant]
     Active Substance: NIFEDIPINE
     Route: 065
     Dates: start: 20101008
  4. NEXIUM [Suspect]
     Active Substance: ESOMEPRAZOLE MAGNESIUM
     Route: 048
     Dates: start: 2006
  5. NEXIUM [Suspect]
     Active Substance: ESOMEPRAZOLE MAGNESIUM
     Route: 048
     Dates: start: 20100927
  6. MICARDIS [Concomitant]
     Active Substance: TELMISARTAN
     Route: 065
     Dates: start: 20101008
  7. POTASSIUM CHLORIDE. [Concomitant]
     Active Substance: POTASSIUM CHLORIDE
     Route: 065
     Dates: start: 20101008
  8. CRESTOR [Concomitant]
     Active Substance: ROSUVASTATIN CALCIUM
     Route: 065
     Dates: start: 20100821
  9. ALLOPURINOL. [Concomitant]
     Active Substance: ALLOPURINOL
     Route: 065
     Dates: start: 20100927
  10. GLIMEPIRIDE. [Concomitant]
     Active Substance: GLIMEPIRIDE
     Route: 065
     Dates: start: 20101207
  11. FUROSEMIDE. [Concomitant]
     Active Substance: FUROSEMIDE
     Route: 065
     Dates: start: 20101008

REACTIONS (5)
  - Chronic kidney disease [Not Recovered/Not Resolved]
  - Renal failure [Unknown]
  - End stage renal disease [Not Recovered/Not Resolved]
  - Acute kidney injury [Unknown]
  - Hyperparathyroidism secondary [Unknown]

NARRATIVE: CASE EVENT DATE: 2010
